FAERS Safety Report 7910616-3 (Version None)
Quarter: 2011Q4

REPORT INFORMATION
  Report Type: 
  Country: None (occurrence: None)
  Receive Date: 20111111
  Receipt Date: 20111104
  Transmission Date: 20120403
  Serious: Yes (Hospitalization)
  Sender: FDA-Public Use
  Company Number: US-US-EMD SERONO, INC.-7082006

PATIENT
  Sex: Female

DRUGS (2)
  1. INSULIN [Concomitant]
  2. REBIF [Suspect]
     Indication: PRODUCT USED FOR UNKNOWN INDICATION
     Route: 058
     Dates: start: 20110105

REACTIONS (4)
  - BLOOD IRON DECREASED [None]
  - INJECTION SITE NODULE [None]
  - MENORRHAGIA [None]
  - INJECTION SITE PAIN [None]
